FAERS Safety Report 4382040-4 (Version None)
Quarter: 2004Q2

REPORT INFORMATION
  Report Type: 
  Country: None (occurrence: None)
  Receive Date: 20040621
  Receipt Date: 20040614
  Transmission Date: 20050107
  Serious: Yes (Death)
  Sender: FDA-Public Use
  Company Number: GB-MERCK-0406GBR00105

PATIENT
  Age: 84 Year
  Sex: Male
  Weight: 51 kg

DRUGS (5)
  1. FOSAMAX [Suspect]
     Indication: OSTEOPOROSIS
     Route: 048
     Dates: start: 20040202, end: 20040405
  2. ETORICOXIB [Concomitant]
     Route: 048
     Dates: start: 20040119
  3. IRON (UNSPECIFIED) [Concomitant]
     Route: 048
     Dates: start: 20040227
  4. ISOSORBIDE MONONITRATE [Concomitant]
     Route: 048
     Dates: start: 20040326
  5. LANSOPRAZOLE [Concomitant]
     Route: 048
     Dates: start: 20040119

REACTIONS (1)
  - GASTRIC ULCER PERFORATION [None]
